FAERS Safety Report 4413866-6 (Version None)
Quarter: 2004Q3

REPORT INFORMATION
  Report Type: 
  Country: None (occurrence: None)
  Receive Date: 20040802
  Receipt Date: 20040802
  Transmission Date: 20050211
  Serious: Yes (Other)
  Sender: FDA-Public Use
  Company Number: None

PATIENT
  Sex: Female
  Weight: 55.7924 kg

DRUGS (7)
  1. DOXORUBICIN HCL [Suspect]
     Indication: ANAPLASTIC THYROID CANCER
     Dosage: 60 MG/M2 = 91 MG IV
     Route: 042
     Dates: start: 20040708
  2. CISPLATIN [Suspect]
     Indication: ANAPLASTIC THYROID CANCER
     Dosage: 100 MG/M2 = 152 MG IV
     Route: 042
     Dates: start: 20040708
  3. SODIUM CHLORIDE 0.9% [Concomitant]
  4. FUROSEMIDE [Concomitant]
  5. ONDANSETRON [Concomitant]
  6. DEXAMETHASONE [Concomitant]
  7. NEULASTA [Concomitant]

REACTIONS (5)
  - DEHYDRATION [None]
  - FALL [None]
  - HUMERUS FRACTURE [None]
  - NAUSEA [None]
  - VOMITING [None]
